FAERS Safety Report 16483758 (Version 1)
Quarter: 2019Q2

REPORT INFORMATION
  Report Type: Spontaneous
  Country: IT (occurrence: IT)
  Receive Date: 20190627
  Receipt Date: 20190627
  Transmission Date: 20190711
  Serious: Yes (Other)
  Sender: FDA-Public Use
  Company Number: IT-TEVA-2019-IT-1067346

PATIENT
  Age: 50 Year
  Sex: Male

DRUGS (46)
  1. RALTEGRAVIR. [Suspect]
     Active Substance: RALTEGRAVIR
     Indication: ACQUIRED IMMUNODEFICIENCY SYNDROME
     Route: 065
  2. VINORELBINE [Concomitant]
     Active Substance: VINORELBINE\VINORELBINE TARTRATE
     Indication: HODGKIN^S DISEASE
     Route: 065
  3. CYCLOPHOSPHAMIDE. [Concomitant]
     Active Substance: CYCLOPHOSPHAMIDE
     Indication: EPSTEIN-BARR VIRUS ASSOCIATED LYMPHOMA
  4. BRENTUXIMAB VEDOTIN [Concomitant]
     Active Substance: BRENTUXIMAB VEDOTIN
     Indication: EPSTEIN-BARR VIRUS ASSOCIATED LYMPHOMA
  5. BRENTUXIMAB VEDOTIN [Concomitant]
     Active Substance: BRENTUXIMAB VEDOTIN
     Indication: METASTATIC LYMPHOMA
  6. ADRIBLASTINE [Concomitant]
     Active Substance: DOXORUBICIN
     Indication: HODGKIN^S DISEASE
     Route: 065
  7. DEXAMETHASONE. [Concomitant]
     Active Substance: DEXAMETHASONE
     Indication: METASTATIC LYMPHOMA
  8. PREDNISONE. [Concomitant]
     Active Substance: PREDNISONE
     Indication: EPSTEIN-BARR VIRUS ASSOCIATED LYMPHOMA
  9. MELPHALAN. [Concomitant]
     Active Substance: MELPHALAN
     Indication: EPSTEIN-BARR VIRUS ASSOCIATED LYMPHOMA
  10. CYSPLATINUM [Concomitant]
     Indication: HODGKIN^S DISEASE
     Dosage: 3 COURSES
     Route: 065
  11. VINBLASTINE [Concomitant]
     Active Substance: VINBLASTINE
     Indication: HODGKIN^S DISEASE
     Route: 065
  12. NIVOLUMAB [Suspect]
     Active Substance: NIVOLUMAB
     Indication: EPSTEIN-BARR VIRUS ASSOCIATED LYMPHOMA
  13. DACARBAZINE. [Concomitant]
     Active Substance: DACARBAZINE
     Indication: HODGKIN^S DISEASE
     Route: 065
  14. BENDAMUSTINE [Concomitant]
     Active Substance: BENDAMUSTINE
     Indication: HODGKIN^S DISEASE
     Route: 065
  15. BENDAMUSTINE [Concomitant]
     Active Substance: BENDAMUSTINE
     Indication: EPSTEIN-BARR VIRUS ASSOCIATED LYMPHOMA
  16. GEMCITABINE [Concomitant]
     Active Substance: GEMCITABINE\GEMCITABINE HYDROCHLORIDE
     Indication: EPSTEIN-BARR VIRUS ASSOCIATED LYMPHOMA
  17. VINCRISTINE [Concomitant]
     Active Substance: VINCRISTINE
     Indication: EPSTEIN-BARR VIRUS ASSOCIATED LYMPHOMA
  18. PROCARBAZINE [Concomitant]
     Active Substance: PROCARBAZINE
     Indication: HODGKIN^S DISEASE
     Dosage: THREE CYCLES
     Route: 065
  19. PROCARBAZINE [Concomitant]
     Active Substance: PROCARBAZINE
     Indication: EPSTEIN-BARR VIRUS ASSOCIATED LYMPHOMA
  20. FOTEMUSTINE [Concomitant]
     Active Substance: FOTEMUSTINE
     Indication: EPSTEIN-BARR VIRUS ASSOCIATED LYMPHOMA
  21. NIVOLUMAB [Suspect]
     Active Substance: NIVOLUMAB
     Indication: HODGKIN^S DISEASE
     Route: 065
  22. BLEOMYCIN [Concomitant]
     Active Substance: BLEOMYCIN SULFATE
     Indication: HODGKIN^S DISEASE
     Dosage: PART OF ABD REGIMEN
     Route: 065
  23. VINBLASTINE [Concomitant]
     Active Substance: VINBLASTINE
     Indication: EPSTEIN-BARR VIRUS ASSOCIATED LYMPHOMA
  24. ADRIAMYCIN [Concomitant]
     Active Substance: DOXORUBICIN HYDROCHLORIDE
     Indication: HODGKIN^S DISEASE
     Dosage: THREE CYCLES
     Route: 065
  25. VINCRISTINE [Concomitant]
     Active Substance: VINCRISTINE
     Indication: HODGKIN^S DISEASE
     Dosage: THREE CYCLES
     Route: 065
  26. CYCLOPHOSPHAMIDE. [Concomitant]
     Active Substance: CYCLOPHOSPHAMIDE
     Indication: HODGKIN^S DISEASE
     Dosage: THREE CYCLES
     Route: 065
  27. CYSPLATINUM [Concomitant]
     Indication: EPSTEIN-BARR VIRUS ASSOCIATED LYMPHOMA
  28. ADRIBLASTINE [Concomitant]
     Active Substance: DOXORUBICIN
     Indication: EPSTEIN-BARR VIRUS ASSOCIATED LYMPHOMA
  29. DEXAMETHASONE. [Concomitant]
     Active Substance: DEXAMETHASONE
     Indication: EPSTEIN-BARR VIRUS ASSOCIATED LYMPHOMA
     Dosage: PART OF DHAP REGIMEN; 3 COURSES
     Route: 065
  30. ETOPOSIDE. [Concomitant]
     Active Substance: ETOPOSIDE
     Indication: HODGKIN^S DISEASE
     Dosage: PART OF BEACOPP REGIMEN; THREE CYCLES
     Route: 065
  31. ETOPOSIDE. [Concomitant]
     Active Substance: ETOPOSIDE
     Indication: EPSTEIN-BARR VIRUS ASSOCIATED LYMPHOMA
     Dosage: PART OF FEAM CONDITIONING REGIMEN
     Route: 065
     Dates: start: 201509
  32. MELPHALAN. [Concomitant]
     Active Substance: MELPHALAN
     Indication: HODGKIN^S DISEASE
     Route: 065
     Dates: start: 201509
  33. BLEOMYCIN [Concomitant]
     Active Substance: BLEOMYCIN SULFATE
     Indication: EPSTEIN-BARR VIRUS ASSOCIATED LYMPHOMA
     Dosage: PART OF BEACOPP REGIMEN; 3 CYCLES
     Route: 065
  34. GEMCITABINE [Concomitant]
     Active Substance: GEMCITABINE\GEMCITABINE HYDROCHLORIDE
     Indication: HODGKIN^S DISEASE
     Route: 065
  35. DEXAMETHASONE. [Concomitant]
     Active Substance: DEXAMETHASONE
     Indication: HODGKIN^S DISEASE
     Dosage: PART OF BEGEV REGIMEN
     Route: 065
  36. CYTARABINE. [Concomitant]
     Active Substance: CYTARABINE
     Indication: EPSTEIN-BARR VIRUS ASSOCIATED LYMPHOMA
     Dosage: PART OF DHAP REGIMEN; 3 COURSES
     Route: 065
  37. EMTRICITABINE W/TENOFOVIR [Suspect]
     Active Substance: EMTRICITABINE\TENOFOVIR DISOPROXIL
     Indication: ACQUIRED IMMUNODEFICIENCY SYNDROME
     Route: 065
  38. DACARBAZINE. [Concomitant]
     Active Substance: DACARBAZINE
     Indication: EPSTEIN-BARR VIRUS ASSOCIATED LYMPHOMA
  39. VINORELBINE [Concomitant]
     Active Substance: VINORELBINE\VINORELBINE TARTRATE
     Indication: EPSTEIN-BARR VIRUS ASSOCIATED LYMPHOMA
  40. ADRIAMYCIN [Concomitant]
     Active Substance: DOXORUBICIN HYDROCHLORIDE
     Indication: EPSTEIN-BARR VIRUS ASSOCIATED LYMPHOMA
  41. PREDNISONE. [Concomitant]
     Active Substance: PREDNISONE
     Indication: HODGKIN^S DISEASE
     Dosage: THREE CYCLES
     Route: 065
  42. FOTEMUSTINE [Concomitant]
     Active Substance: FOTEMUSTINE
     Indication: HODGKIN^S DISEASE
     Route: 065
     Dates: start: 201509
  43. CYTARABINE. [Concomitant]
     Active Substance: CYTARABINE
     Indication: HODGKIN^S DISEASE
     Dosage: PART OF FEAM CONDITIONING REGIMEN
     Route: 065
     Dates: start: 201509
  44. CYTARABINE. [Concomitant]
     Active Substance: CYTARABINE
     Indication: METASTATIC LYMPHOMA
  45. CYSPLATINUM [Concomitant]
     Indication: METASTATIC LYMPHOMA
  46. BRENTUXIMAB VEDOTIN [Concomitant]
     Active Substance: BRENTUXIMAB VEDOTIN
     Indication: HODGKIN^S DISEASE
     Dosage: 8 COURSES
     Route: 065

REACTIONS (2)
  - Thrombocytopenia [Recovered/Resolved]
  - Neuropathy peripheral [Unknown]
